FAERS Safety Report 25066996 (Version 1)
Quarter: 2025Q1

REPORT INFORMATION
  Report Type: Spontaneous
  Country: SG (occurrence: SG)
  Receive Date: 20250312
  Receipt Date: 20250312
  Transmission Date: 20250409
  Serious: Yes (Other)
  Sender: BOEHRINGER INGELHEIM
  Company Number: SG-BoehringerIngelheim-2025-BI-014481

PATIENT
  Age: 79 Year
  Sex: Female

DRUGS (1)
  1. EMPAGLIFLOZIN [Suspect]
     Active Substance: EMPAGLIFLOZIN
     Indication: Product used for unknown indication

REACTIONS (2)
  - Eczema [Unknown]
  - Periorbital oedema [Unknown]

NARRATIVE: CASE EVENT DATE: 20250101
